FAERS Safety Report 6202746-1 (Version None)
Quarter: 2009Q2

REPORT INFORMATION
  Report Type: 
  Country: None (occurrence: None)
  Receive Date: 20090526
  Receipt Date: 20090522
  Transmission Date: 20091009
  Serious: Yes (Death)
  Sender: FDA-Public Use
  Company Number: PHHY2009VE20000

PATIENT
  Age: 3 Year
  Sex: Male

DRUGS (1)
  1. CATAFLAM [Suspect]
     Route: 065

REACTIONS (4)
  - CONVULSION [None]
  - HYPOTHERMIA [None]
  - PYREXIA [None]
  - RESPIRATORY ARREST [None]
